FAERS Safety Report 10936311 (Version 1)
Quarter: 2015Q1

REPORT INFORMATION
  Report Type: Spontaneous
  Country: US (occurrence: None)
  Receive Date: 20150320
  Receipt Date: 20150320
  Transmission Date: 20150721
  Serious: No
  Sender: FDA-Public Use
  Company Number: None

PATIENT
  Age: 43 Year
  Sex: Male
  Weight: 81.65 kg

DRUGS (1)
  1. ADDERALL [Suspect]
     Active Substance: AMPHETAMINE ASPARTATE\AMPHETAMINE SULFATE\DEXTROAMPHETAMINE SACCHARATE\DEXTROAMPHETAMINE SULFATE
     Indication: ATTENTION DEFICIT/HYPERACTIVITY DISORDER
     Dosage: 1 PILL
     Route: 048
     Dates: start: 20150318, end: 20150319

REACTIONS (9)
  - Product substitution issue [None]
  - Dry mouth [None]
  - Blood pressure decreased [None]
  - Nausea [None]
  - Vision blurred [None]
  - Product quality issue [None]
  - Dizziness [None]
  - Drug ineffective [None]
  - Product formulation issue [None]

NARRATIVE: CASE EVENT DATE: 20150318
